FAERS Safety Report 15036472 (Version 1)
Quarter: 2018Q2

REPORT INFORMATION
  Report Type: Spontaneous
  Country: NL (occurrence: NL)
  Receive Date: 20180620
  Receipt Date: 20180620
  Transmission Date: 20180711
  Serious: Yes (Hospitalization)
  Sender: FDA-Public Use
  Company Number: NL-TEVA-2018-NL-909906

PATIENT
  Age: 36 Year
  Sex: Female
  Weight: 61 kg

DRUGS (3)
  1. PREGABALINE 75MG [Concomitant]
     Route: 065
  2. OXYCODON TABLET 10MG TABLET, 10 MG (MILLIGRAM) [Suspect]
     Active Substance: OXYCODONE
     Indication: NEURALGIA
     Route: 065
     Dates: start: 20180423, end: 20180501
  3. MOVICOLON ELEKTROLYTEN [Concomitant]
     Route: 065

REACTIONS (1)
  - Urinary retention [Recovered/Resolved]

NARRATIVE: CASE EVENT DATE: 20180501
